FAERS Safety Report 7942193-5 (Version None)
Quarter: 2011Q4

REPORT INFORMATION
  Report Type: 
  Country: None (occurrence: None)
  Receive Date: 20111122
  Receipt Date: 20111110
  Transmission Date: 20120403
  Serious: Yes (Other)
  Sender: FDA-Public Use
  Company Number: 2011MA016514

PATIENT
  Age: 67 Year
  Sex: Female

DRUGS (3)
  1. DIAZEPAM [Suspect]
     Indication: ANXIETY
     Dosage: 2 MG;Q2H;PO
     Route: 048
     Dates: start: 20060713
  2. RANITIDINE [Concomitant]
  3. IBUPROFEN [Concomitant]

REACTIONS (21)
  - WEIGHT DECREASED [None]
  - MYALGIA [None]
  - WITHDRAWAL SYNDROME [None]
  - CONDITION AGGRAVATED [None]
  - STARING [None]
  - GAIT DISTURBANCE [None]
  - HALLUCINATION [None]
  - APHAGIA [None]
  - ANXIETY [None]
  - DYSSTASIA [None]
  - PHOTOPHOBIA [None]
  - BEDRIDDEN [None]
  - SERUM FERRITIN DECREASED [None]
  - DISTURBANCE IN ATTENTION [None]
  - ORAL PAIN [None]
  - MALAISE [None]
  - FATIGUE [None]
  - SEDATION [None]
  - NERVOUS SYSTEM DISORDER [None]
  - GASTROINTESTINAL DISORDER [None]
  - ASTHENIA [None]
